FAERS Safety Report 7908888-4 (Version None)
Quarter: 2011Q4

REPORT INFORMATION
  Report Type: 
  Country: None (occurrence: None)
  Receive Date: 20111111
  Receipt Date: 20111103
  Transmission Date: 20120403
  Serious: Yes (Hospitalization)
  Sender: FDA-Public Use
  Company Number: US-SANOFI-AVENTIS-2011SA059664

PATIENT
  Sex: Male

DRUGS (1)
  1. AMBIEN [Suspect]
     Dosage: 6+ YEARS
     Route: 048

REACTIONS (3)
  - SOMNAMBULISM [None]
  - ROAD TRAFFIC ACCIDENT [None]
  - BLOOD PRESSURE DECREASED [None]
